FAERS Safety Report 26047892 (Version 1)
Quarter: 2025Q4

REPORT INFORMATION
  Report Type: Report from Study
  Country: US (occurrence: US)
  Receive Date: 20251114
  Receipt Date: 20251114
  Transmission Date: 20260117
  Serious: Yes (Other)
  Sender: BAYER HEALTHCARE PHARMACEUTICALS INC.
  Company Number: US-BAYER-2025A150781

PATIENT
  Age: 59 Year
  Sex: Male

DRUGS (1)
  1. NUBEQA [Suspect]
     Active Substance: DAROLUTAMIDE
     Indication: Prostate cancer
     Dosage: 600 MG, BID
     Route: 048
     Dates: start: 20250912, end: 20251031

REACTIONS (5)
  - Liver injury [None]
  - Hepatic enzyme increased [Unknown]
  - Weight increased [Unknown]
  - Hot flush [Not Recovered/Not Resolved]
  - Emotional disorder [Not Recovered/Not Resolved]

NARRATIVE: CASE EVENT DATE: 20250101
